FAERS Safety Report 18581974 (Version 1)
Quarter: 2020Q4

REPORT INFORMATION
  Report Type: Spontaneous
  Country: IT (occurrence: IT)
  Receive Date: 20201205
  Receipt Date: 20201205
  Transmission Date: 20210114
  Serious: Yes (Other)
  Sender: FDA-Public Use
  Company Number: IT-RECORDATI RARE DISEASES-2098676

PATIENT
  Age: 33 Year
  Sex: Female

DRUGS (1)
  1. SIGNIFOR [Suspect]
     Active Substance: PASIREOTIDE DIASPARTATE
     Indication: PITUITARY-DEPENDENT CUSHING^S SYNDROME

REACTIONS (9)
  - Alopecia [Unknown]
  - Cortisol abnormal [Unknown]
  - Injection site pain [Unknown]
  - Injection site haematoma [Unknown]
  - Hyperglycaemia [Unknown]
  - Injection site erythema [Unknown]
  - Diabetes mellitus [Unknown]
  - Diarrhoea [Unknown]
  - Injection site irritation [Unknown]
